FAERS Safety Report 5062689-6 (Version None)
Quarter: 2006Q3

REPORT INFORMATION
  Report Type: 
  Country: None (occurrence: None)
  Receive Date: 20060703
  Receipt Date: 20051031
  Transmission Date: 20061208
  Serious: No
  Sender: FDA-Public Use
  Company Number: 2005S1010709

PATIENT
  Age: 39 Year
  Sex: Male

DRUGS (4)
  1. CLOZAPINE [Suspect]
     Dosage: 700 MG; HS; PO
     Route: 048
  2. BENZTROPINE MESYLATE [Concomitant]
  3. ZOLPIDEM TARTRATE [Concomitant]
  4. AMANTADINE HCL [Concomitant]

REACTIONS (1)
  - GRANULOCYTOPENIA [None]
